FAERS Safety Report 5887261-7 (Version None)
Quarter: 2008Q3

REPORT INFORMATION
  Report Type: 
  Country: None (occurrence: None)
  Receive Date: 20080915
  Receipt Date: 20080906
  Transmission Date: 20090109
  Serious: Yes (Other)
  Sender: FDA-Public Use
  Company Number: CHPA2008US14842

PATIENT
  Age: 55 Year
  Sex: Male

DRUGS (2)
  1. NICOTINE [Suspect]
     Indication: SMOKING CESSATION THERAPY
     Dosage: 14 MG, QD, TRANSDERMAL; 7 MG, QD, TRANSDERMAL
     Route: 062
     Dates: start: 20080715, end: 20080826
  2. NICOTINE [Suspect]
     Indication: SMOKING CESSATION THERAPY
     Dosage: 14 MG, QD, TRANSDERMAL; 7 MG, QD, TRANSDERMAL
     Route: 062
     Dates: start: 20080827, end: 20080830

REACTIONS (4)
  - AGGRESSION [None]
  - HOMICIDAL IDEATION [None]
  - INCORRECT DOSE ADMINISTERED [None]
  - LOSS OF EMPLOYMENT [None]
